FAERS Safety Report 12552191 (Version 2)
Quarter: 2016Q3

REPORT INFORMATION
  Report Type: Spontaneous
  Country: KR (occurrence: KR)
  Receive Date: 20160713
  Receipt Date: 20160721
  Transmission Date: 20161109
  Serious: Yes (Death, Hospitalization)
  Sender: FDA-Public Use
  Company Number: KR-BAYER-2016-130434

PATIENT
  Age: 27 Year
  Sex: Male

DRUGS (2)
  1. AMIKACIN [Concomitant]
     Active Substance: AMIKACIN
     Indication: INFECTION
  2. CIPROFLOXACIN MONOHYDROCHLORIDE [Suspect]
     Active Substance: CIPROFLOXACIN
     Indication: INFECTION
     Dosage: 400 MG, BID

REACTIONS (3)
  - Sepsis [Fatal]
  - Nasal necrosis [None]
  - Staphylococcal sepsis [None]
